FAERS Safety Report 10162182 (Version 3)
Quarter: 2014Q2

REPORT INFORMATION
  Report Type: Spontaneous
  Country: US (occurrence: US)
  Receive Date: 20140509
  Receipt Date: 20140611
  Transmission Date: 20141212
  Serious: Yes (Hospitalization)
  Sender: FDA-Public Use
  Company Number: US-ASTRAZENECA-2014SE28119

PATIENT
  Age: 19917 Day
  Sex: Female
  Weight: 53.5 kg

DRUGS (7)
  1. LISINOPRIL [Suspect]
     Indication: BLOOD PRESSURE ABNORMAL
     Route: 048
  2. OMEPRAZOLE [Suspect]
     Indication: GASTROOESOPHAGEAL REFLUX DISEASE
     Route: 048
     Dates: start: 2013
  3. PULMICORT FLEXHALER [Suspect]
     Dosage: 180 MCG, 1 PUFF EVERY 12 HOURS
     Route: 055
     Dates: start: 20140414
  4. MAXIDE [Concomitant]
     Indication: HYPERTENSION
     Dosage: DAILY
  5. PAROXETINE [Concomitant]
     Indication: SLEEP DISORDER
     Dosage: DAILY
     Dates: start: 2013
  6. AMLODIPINE [Concomitant]
     Indication: HYPERTENSION
     Dates: start: 201310
  7. PROAIR [Concomitant]
     Indication: CHRONIC OBSTRUCTIVE PULMONARY DISEASE
     Dosage: 2 PUFFS, FOUR TIMES A DAY
     Dates: start: 201404

REACTIONS (5)
  - Dyspnoea [Recovered/Resolved]
  - Drug intolerance [Unknown]
  - Circumstance or information capable of leading to medication error [Unknown]
  - Drug dose omission [Unknown]
  - Drug ineffective [Unknown]
